FAERS Safety Report 14439576 (Version 1)
Quarter: 2018Q1

REPORT INFORMATION
  Report Type: Spontaneous
  Country: DE (occurrence: DE)
  Receive Date: 20180125
  Receipt Date: 20180125
  Transmission Date: 20180509
  Serious: Yes (Other)
  Sender: FDA-Public Use
  Company Number: DE-TEVA-2018-DE-848130

PATIENT
  Age: 68 Year
  Sex: Female

DRUGS (2)
  1. PANTOPRAZOLE SODIUM. [Concomitant]
     Active Substance: PANTOPRAZOLE SODIUM
     Dosage: 0-0-1
  2. OLMESARTAN-ABZ 20 MG FILMTABLETTEN [Suspect]
     Active Substance: OLMESARTAN
     Dosage: 3TH PACK, ONE TABLET IN THE MORNING
     Route: 048

REACTIONS (2)
  - Blood pressure increased [Unknown]
  - Product substitution issue [Unknown]
